FAERS Safety Report 20855820 (Version 1)
Quarter: 2022Q2

REPORT INFORMATION
  Report Type: Spontaneous
  Country: ES (occurrence: ES)
  Receive Date: 20220520
  Receipt Date: 20220520
  Transmission Date: 20220721
  Serious: Yes (Hospitalization, Other)
  Sender: FDA-Public Use
  Company Number: ES-FERRINGPH-2022FE02177

PATIENT
  Sex: Male

DRUGS (8)
  1. MESALAMINE [Suspect]
     Active Substance: MESALAMINE
     Indication: Colitis ulcerative
     Dosage: 4 G, UNKNOWN
     Dates: start: 201611
  2. MESALAMINE [Suspect]
     Active Substance: MESALAMINE
     Indication: Segmental diverticular colitis
     Dosage: UNK
     Dates: start: 2012
  3. MESALAMINE [Suspect]
     Active Substance: MESALAMINE
     Indication: Colitis
  4. UNSPECIFIED INGREDIENT [Concomitant]
     Active Substance: UNSPECIFIED INGREDIENT
     Indication: Rheumatoid arthritis
  5. METHOTREXATE [Concomitant]
     Active Substance: METHOTREXATE
     Indication: Rheumatoid arthritis
  6. UNSPECIFIED INGREDIENT [Concomitant]
     Active Substance: UNSPECIFIED INGREDIENT
     Indication: Colitis
     Dosage: UNK
     Dates: start: 2012
  7. RIFAXIMIN [Concomitant]
     Active Substance: RIFAXIMIN
     Indication: Colitis
     Dosage: UNK
  8. RIFAXIMIN [Concomitant]
     Active Substance: RIFAXIMIN
     Dosage: UNK
     Dates: start: 2012

REACTIONS (3)
  - Pulmonary embolism [Unknown]
  - Diarrhoea haemorrhagic [Unknown]
  - Off label use [Unknown]

NARRATIVE: CASE EVENT DATE: 20120101
